FAERS Safety Report 4849370-0 (Version None)
Quarter: 2005Q4

REPORT INFORMATION
  Report Type: 
  Country: None (occurrence: None)
  Receive Date: 20051207
  Receipt Date: 20051128
  Transmission Date: 20060501
  Serious: Yes (Other)
  Sender: FDA-Public Use
  Company Number: KII-2005-0019940

PATIENT
  Sex: Female

DRUGS (1)
  1. OXYCONTIN [Suspect]
     Indication: ACCIDENTAL EXPOSURE
     Dosage: SEE TEXT, ORAL
     Route: 048
     Dates: start: 20051031, end: 20051031

REACTIONS (3)
  - ACCIDENTAL EXPOSURE [None]
  - COMA [None]
  - OVERDOSE [None]
